FAERS Safety Report 4916685-7 (Version None)
Quarter: 2006Q1

REPORT INFORMATION
  Report Type: 
  Country: None (occurrence: None)
  Receive Date: 20060220
  Receipt Date: 20060210
  Transmission Date: 20060701
  Serious: Yes (Hospitalization)
  Sender: FDA-Public Use
  Company Number: 2006PK00348

PATIENT
  Age: 54 Year
  Sex: Female

DRUGS (7)
  1. SEROQUEL [Suspect]
     Route: 048
     Dates: start: 20051212, end: 20051216
  2. SEROQUEL [Interacting]
     Route: 048
     Dates: start: 20051219, end: 20051220
  3. SEROQUEL [Interacting]
     Route: 048
     Dates: start: 20051221, end: 20051222
  4. SEROQUEL [Interacting]
     Route: 048
     Dates: start: 20051223, end: 20060110
  5. SEROQUEL [Interacting]
     Route: 048
     Dates: start: 20060111
  6. DEPAKENE [Interacting]
     Route: 048
     Dates: start: 20051111
  7. NOZINAN [Concomitant]
     Route: 048
     Dates: start: 20051214, end: 20051214

REACTIONS (6)
  - DIZZINESS [None]
  - DRUG INTERACTION [None]
  - GENERAL PHYSICAL HEALTH DETERIORATION [None]
  - OEDEMA PERIPHERAL [None]
  - PYREXIA [None]
  - TREMOR [None]
